FAERS Safety Report 10501954 (Version 1)
Quarter: 2014Q4

REPORT INFORMATION
  Report Type: Spontaneous
  Country: IE (occurrence: IE)
  Receive Date: 20141007
  Receipt Date: 20141007
  Transmission Date: 20150528
  Serious: Yes (Other)
  Sender: FDA-Public Use
  Company Number: GB-ELI_LILLY_AND_COMPANY-GB201409009592

PATIENT
  Sex: Female

DRUGS (4)
  1. CYMBALTA [Suspect]
     Active Substance: DULOXETINE HYDROCHLORIDE
     Dosage: 60 MG, UNKNOWN
     Route: 048
     Dates: start: 2012, end: 201409
  2. CYMBALTA [Suspect]
     Active Substance: DULOXETINE HYDROCHLORIDE
     Dosage: 90 MG, UNKNOWN
     Route: 048
  3. CYMBALTA [Suspect]
     Active Substance: DULOXETINE HYDROCHLORIDE
     Indication: FIBROMYALGIA
     Dosage: 30 MG, UNKNOWN
     Route: 048
     Dates: start: 2012
  4. LIMBITROL [Concomitant]
     Active Substance: AMITRIPTYLINE\CHLORDIAZEPOXIDE
     Indication: INSOMNIA
     Dosage: 2 DF, EACH EVENING
     Route: 065

REACTIONS (9)
  - Deafness unilateral [Unknown]
  - Abdominal pain upper [Unknown]
  - Drug ineffective [Unknown]
  - Urinary incontinence [Unknown]
  - Insomnia [Unknown]
  - Nausea [Unknown]
  - Tinnitus [Unknown]
  - Wrong technique in drug usage process [Unknown]
  - Dizziness [Unknown]

NARRATIVE: CASE EVENT DATE: 2012
